FAERS Safety Report 21654284 (Version 2)
Quarter: 2022Q4

REPORT INFORMATION
  Report Type: Spontaneous
  Country: US (occurrence: US)
  Receive Date: 20221129
  Receipt Date: 20221207
  Transmission Date: 20230113
  Serious: Yes (Other)
  Sender: FDA-Public Use
  Company Number: US-KEDRION-2022-000507

PATIENT
  Age: 15 Year
  Sex: Female

DRUGS (2)
  1. HUMAN RHO(D) IMMUNE GLOBULIN [Suspect]
     Active Substance: HUMAN RHO(D) IMMUNE GLOBULIN
     Indication: Alloimmunisation
     Dosage: UNK MICROGRAM
     Route: 030
  2. HUMAN RHO(D) IMMUNE GLOBULIN [Suspect]
     Active Substance: HUMAN RHO(D) IMMUNE GLOBULIN
     Indication: Alloimmunisation
     Dosage: UNK
     Route: 042

REACTIONS (6)
  - Exposure during pregnancy [Recovered/Resolved with Sequelae]
  - Drug ineffective [Recovered/Resolved with Sequelae]
  - Foetal-maternal haemorrhage [Recovered/Resolved with Sequelae]
  - Foetal death [Recovered/Resolved with Sequelae]
  - Off label use [Recovered/Resolved]
  - Discomfort [Unknown]
